FAERS Safety Report 22073001 (Version 1)
Quarter: 2023Q1

REPORT INFORMATION
  Report Type: Report from Study
  Country: CO (occurrence: CO)
  Receive Date: 20230308
  Receipt Date: 20230308
  Transmission Date: 20230417
  Serious: Yes (Hospitalization)
  Sender: FDA-Public Use
  Company Number: CO-ASTELLAS-2023US007429

PATIENT
  Age: 68 Year
  Sex: Female
  Weight: 48 kg

DRUGS (2)
  1. TACROLIMUS [Suspect]
     Active Substance: TACROLIMUS
     Indication: Liver transplant
     Dosage: 5 MG, ONCE DAILY (TACROLIMUS 5MG)
     Route: 048
     Dates: start: 20220623
  2. TACROLIMUS [Suspect]
     Active Substance: TACROLIMUS
     Dosage: 4 MG, ONCE DAILY  (TACROLIMUS 1MG+TACROLIMUS 3MG)
     Route: 048

REACTIONS (2)
  - Spinal pain [Recovered/Resolved]
  - Pain in extremity [Recovered/Resolved]
